FAERS Safety Report 15496457 (Version 2)
Quarter: 2020Q4

REPORT INFORMATION
  Report Type: Spontaneous
  Country: FR (occurrence: FR)
  Receive Date: 20181012
  Receipt Date: 20201231
  Transmission Date: 20210113
  Serious: Yes (Hospitalization)
  Sender: FDA-Public Use
  Company Number: FR-BAUSCH-BL-2018-027423

PATIENT
  Age: 70 Year
  Sex: Male

DRUGS (10)
  1. METFORMINE [Suspect]
     Active Substance: METFORMIN HYDROCHLORIDE
     Indication: TYPE 2 DIABETES MELLITUS
     Route: 048
     Dates: end: 20180917
  2. ATENOLOL. [Concomitant]
     Active Substance: ATENOLOL
     Indication: HYPERTENSION
     Route: 048
  3. RANITIDINE BASE [Concomitant]
     Active Substance: RANITIDINE HYDROCHLORIDE
     Indication: PRODUCT USED FOR UNKNOWN INDICATION
     Route: 048
     Dates: start: 20180911
  4. XATRAL LP [Concomitant]
     Active Substance: ALFUZOSIN
     Indication: PROSTATOMEGALY
     Route: 048
     Dates: start: 20180911
  5. LERCAN [Suspect]
     Active Substance: LERCANIDIPINE
     Indication: HYPERTENSION
     Dosage: DIVISIBLE COATED TABLET
     Route: 048
     Dates: start: 20180911, end: 20180917
  6. NOVOMIX [Suspect]
     Active Substance: INSULIN ASPART
     Indication: TYPE 2 DIABETES MELLITUS
     Route: 058
     Dates: end: 20180917
  7. CANDESARTAN CILEXETIL. [Suspect]
     Active Substance: CANDESARTAN CILEXETIL
     Indication: HYPERTENSION
     Route: 048
     Dates: start: 20180911, end: 20180917
  8. DEXERYL [Concomitant]
     Indication: ECZEMA
     Dosage: UNIT DOSE: 1 (UNSPECIFIED UNITS), CREAM IN TUBE
     Route: 003
  9. ELIQUIS [Suspect]
     Active Substance: APIXABAN
     Indication: ATRIAL FLUTTER
     Route: 048
     Dates: start: 20180911, end: 20180917
  10. ATORVASTATINE [Concomitant]
     Active Substance: ATORVASTATIN
     Indication: HYPERCHOLESTEROLAEMIA
     Route: 048

REACTIONS (1)
  - Acute kidney injury [Recovered/Resolved]

NARRATIVE: CASE EVENT DATE: 20180913
